FAERS Safety Report 7597973-5 (Version None)
Quarter: 2011Q3

REPORT INFORMATION
  Report Type: 
  Country: None (occurrence: None)
  Receive Date: 20110708
  Receipt Date: 20110628
  Transmission Date: 20111222
  Serious: Yes (Other)
  Sender: FDA-Public Use
  Company Number: PHHY2011TR57771

PATIENT
  Age: 5 Month
  Sex: Male
  Weight: 6.4 kg

DRUGS (1)
  1. CEFTRIAXONE [Suspect]
     Indication: URINARY TRACT INFECTION

REACTIONS (3)
  - ECCHYMOSIS [None]
  - VITAMIN K DEFICIENCY [None]
  - HAEMORRHAGE [None]
